FAERS Safety Report 4626739-0 (Version None)
Quarter: 2005Q2

REPORT INFORMATION
  Report Type: 
  Country: None (occurrence: None)
  Receive Date: 20050405
  Receipt Date: 20050329
  Transmission Date: 20051028
  Serious: Yes (Other)
  Sender: FDA-Public Use
  Company Number: 200512652US

PATIENT
  Age: 51 Year
  Sex: Male

DRUGS (5)
  1. LANTUS [Suspect]
     Indication: DIABETES MELLITUS INSULIN-DEPENDENT
     Dosage: DOSE UNIT: UNITS
     Dates: start: 20020101
  2. BENADRYL [Suspect]
     Dates: start: 20050327, end: 20050327
  3. PROPRANOLOL [Concomitant]
     Dosage: DOSE: UNK
  4. ALTACE [Concomitant]
     Dosage: DOSE: UNK
  5. HUMALOG [Concomitant]
     Dosage: DOSE: UNK

REACTIONS (8)
  - BLOOD GLUCOSE ABNORMAL [None]
  - BLOOD GLUCOSE INCREASED [None]
  - FACE INJURY [None]
  - HAEMORRHAGE [None]
  - HYPOGLYCAEMIC COMA [None]
  - NASAL OEDEMA [None]
  - PERIORBITAL HAEMATOMA [None]
  - SWELLING FACE [None]
